FAERS Safety Report 7214290-3 (Version None)
Quarter: 2011Q1

REPORT INFORMATION
  Report Type: 
  Country: None (occurrence: None)
  Receive Date: 20110107
  Receipt Date: 20110104
  Transmission Date: 20110831
  Serious: Yes (Hospitalization)
  Sender: FDA-Public Use
  Company Number: US-BRISTOL-MYERS SQUIBB COMPANY-15471048

PATIENT
  Age: 52 Year
  Sex: Male
  Weight: 114 kg

DRUGS (4)
  1. CARBOPLATIN [Suspect]
     Indication: NON-SMALL CELL LUNG CANCER
     Dosage: LAST DOSE ON 06DEC10.NO OF COURSES:8
     Dates: start: 20100927
  2. TAXOL [Suspect]
     Indication: NON-SMALL CELL LUNG CANCER
     Dosage: NO OF COURSES:8.LAST DOSE ON 06DEC10
     Dates: start: 20100927
  3. PROMETHAZINE W/ CODEINE [Concomitant]
     Indication: COUGH
     Dosage: COUGH SYRUP
  4. COMBIVENT [Concomitant]
     Dosage: INHALER
     Route: 055

REACTIONS (3)
  - HYPOKALAEMIA [None]
  - COUGH [None]
  - HYPOMAGNESAEMIA [None]
